FAERS Safety Report 7213862-X (Version None)
Quarter: 2011Q1

REPORT INFORMATION
  Report Type: 
  Country: None (occurrence: None)
  Receive Date: 20110106
  Receipt Date: 20101227
  Transmission Date: 20110831
  Serious: Yes (Hospitalization, Disabling, Other)
  Sender: FDA-Public Use
  Company Number: US-BAYER-201019631BCC

PATIENT
  Sex: Male
  Weight: 86 kg

DRUGS (13)
  1. CLONIDINE [Concomitant]
  2. ASPIRIN [Suspect]
     Indication: PRODUCT USED FOR UNKNOWN INDICATION
     Route: 048
     Dates: start: 19700101
  3. ALEVE [Suspect]
     Indication: MYALGIA
     Route: 048
     Dates: start: 20060101, end: 20060615
  4. ALEVE [Suspect]
     Dosage: 220 MG, PRN
     Route: 048
     Dates: start: 20090524, end: 20100515
  5. ASPIRIN [Suspect]
     Route: 048
  6. ALEVE [Suspect]
     Dosage: 440 MG, QD
     Route: 048
     Dates: start: 20100601, end: 20100815
  7. ALEVE [Suspect]
     Dosage: 220 MG, QD
     Route: 048
     Dates: start: 20100801
  8. XANAX [Concomitant]
     Dates: start: 20100501, end: 20100715
  9. ALEVE [Suspect]
     Indication: FATIGUE
     Dosage: 220 MG, PRN
     Route: 048
     Dates: start: 20080401, end: 20080401
  10. ALEVE [Suspect]
     Dosage: 220 MG, QD
     Route: 048
     Dates: start: 20100501, end: 20100615
  11. METOPROLOL [Concomitant]
     Indication: BLOOD PRESSURE ABNORMAL
     Route: 042
  12. ALEVE [Suspect]
     Indication: CEREBROVASCULAR ACCIDENT PROPHYLAXIS
     Dosage: 220 MG, QD
     Route: 048
     Dates: start: 20080424, end: 20080515
  13. UNCODEABLE ^UNCLASSIFIABLE^ [Concomitant]
     Indication: CEREBROVASCULAR ACCIDENT PROPHYLAXIS

REACTIONS (14)
  - HAEMORRHOIDAL HAEMORRHAGE [None]
  - CEREBROVASCULAR ACCIDENT [None]
  - ASTHENIA [None]
  - HAEMORRHAGIC DIATHESIS [None]
  - RENAL PAIN [None]
  - CHROMATURIA [None]
  - DYSGEUSIA [None]
  - BLISTER [None]
  - MACULE [None]
  - HEMIPLEGIA [None]
  - GAIT DISTURBANCE [None]
  - HEADACHE [None]
  - CONTUSION [None]
  - SCAB [None]
